FAERS Safety Report 17291584 (Version 1)
Quarter: 2020Q1

REPORT INFORMATION
  Report Type: Spontaneous
  Country: CL (occurrence: CL)
  Receive Date: 20200121
  Receipt Date: 20200121
  Transmission Date: 20200409
  Serious: Yes (Other)
  Sender: FDA-Public Use
  Company Number: CL-BAYER-2019-235815

PATIENT
  Age: 40 Year
  Sex: Female

DRUGS (2)
  1. MIRENA [Suspect]
     Active Substance: LEVONORGESTREL
     Dosage: 20 MCG/24HR, CONT
     Route: 015
     Dates: start: 20191010
  2. MIRENA [Suspect]
     Active Substance: LEVONORGESTREL

REACTIONS (2)
  - Angioedema [Not Recovered/Not Resolved]
  - Urticaria [Not Recovered/Not Resolved]

NARRATIVE: CASE EVENT DATE: 20191030
